FAERS Safety Report 7395641-6 (Version None)
Quarter: 2011Q2

REPORT INFORMATION
  Report Type: 
  Country: None (occurrence: None)
  Receive Date: 20110405
  Receipt Date: 20110401
  Transmission Date: 20111010
  Serious: Yes (Other)
  Sender: FDA-Public Use
  Company Number: US-PFIZER INC-2011067488

PATIENT
  Sex: Male
  Weight: 74.83 kg

DRUGS (1)
  1. CHANTIX [Suspect]
     Indication: SMOKING CESSATION THERAPY
     Dosage: 0.5 MG, 1X/DAY
     Route: 048
     Dates: start: 20110122, end: 20110323

REACTIONS (7)
  - NAUSEA [None]
  - MENTAL DISORDER [None]
  - CONSTIPATION [None]
  - AGGRESSION [None]
  - ANGER [None]
  - INSOMNIA [None]
  - SCREAMING [None]
